FAERS Safety Report 10073540 (Version 2)
Quarter: 2014Q2

REPORT INFORMATION
  Report Type: Report from Study
  Country: DE (occurrence: DE)
  Receive Date: 20140411
  Receipt Date: 20140506
  Transmission Date: 20141212
  Serious: Yes (Hospitalization, Other)
  Sender: FDA-Public Use
  Company Number: DE-ABBVIE-14P-062-1222204-00

PATIENT
  Age: 44 Year
  Sex: Female
  Weight: 85 kg

DRUGS (9)
  1. HUMIRA [Suspect]
     Indication: CROHN^S DISEASE
     Route: 058
     Dates: start: 20100319, end: 201402
  2. MESALAZINE [Concomitant]
     Indication: PRODUCT USED FOR UNKNOWN INDICATION
     Dates: start: 20140110
  3. ROXITHROMYCIN [Concomitant]
     Indication: PRODUCT USED FOR UNKNOWN INDICATION
     Dates: start: 20140110, end: 20140127
  4. DECORTIN [Concomitant]
     Indication: PRODUCT USED FOR UNKNOWN INDICATION
     Dates: start: 20140204, end: 20140319
  5. PANTOZOL [Concomitant]
     Indication: PRODUCT USED FOR UNKNOWN INDICATION
  6. AZATHIOPRINE [Concomitant]
     Indication: PRODUCT USED FOR UNKNOWN INDICATION
  7. MTX [Concomitant]
     Indication: PRODUCT USED FOR UNKNOWN INDICATION
     Route: 058
  8. BUDESONIDE [Concomitant]
     Indication: PRODUCT USED FOR UNKNOWN INDICATION
  9. L-THYROXINE [Concomitant]
     Indication: PRODUCT USED FOR UNKNOWN INDICATION

REACTIONS (11)
  - Joint swelling [Not Recovered/Not Resolved]
  - Rash macular [Not Recovered/Not Resolved]
  - Joint swelling [Not Recovered/Not Resolved]
  - Pyrexia [Not Recovered/Not Resolved]
  - Anal abscess [Not Recovered/Not Resolved]
  - Drug effect decreased [Unknown]
  - Colitis ulcerative [Unknown]
  - Superinfection [Unknown]
  - Rectal abscess [Unknown]
  - Proctalgia [Not Recovered/Not Resolved]
  - Crohn^s disease [Unknown]
